FAERS Safety Report 9836876 (Version 2)
Quarter: 2020Q2

REPORT INFORMATION
  Report Type: Spontaneous
  Country: US (occurrence: US)
  Receive Date: 20140123
  Receipt Date: 20200415
  Transmission Date: 20200714
  Serious: Yes (Other)
  Sender: FDA-Public Use
  Company Number: US-PFIZER INC-2014020310

PATIENT
  Age: 48 Year
  Sex: Female

DRUGS (2)
  1. LYRICA [Suspect]
     Active Substance: PREGABALIN
     Indication: MULTIPLE SCLEROSIS
     Dosage: 100 MG, 1X/DAY(2 CAPSULES AT NIGHT)
     Route: 048
  2. LYRICA [Suspect]
     Active Substance: PREGABALIN
     Indication: NEURALGIA
     Dosage: 150 MG, DAILY(ONE CAPSULE IN THE MORNING AND 2 CAPSULES AT NIGHT)

REACTIONS (10)
  - Malaise [Unknown]
  - Food allergy [Unknown]
  - Somnolence [Unknown]
  - Seasonal allergy [Not Recovered/Not Resolved]
  - Therapeutic response unexpected [Unknown]
  - Body height decreased [Unknown]
  - Weight increased [Unknown]
  - Pre-existing condition improved [Unknown]
  - Product use in unapproved indication [Not Recovered/Not Resolved]
  - Off label use [Not Recovered/Not Resolved]
